FAERS Safety Report 8100609-8 (Version None)
Quarter: 2012Q1

REPORT INFORMATION
  Report Type: 
  Country: None (occurrence: None)
  Receive Date: 20120131
  Receipt Date: 20120124
  Transmission Date: 20120608
  Serious: Yes (Hospitalization)
  Sender: FDA-Public Use
  Company Number: NL-ABBOTT-12P-114-0898118-00

PATIENT
  Sex: Female

DRUGS (1)
  1. HUMIRA [Suspect]
     Indication: RHEUMATOID ARTHRITIS
     Route: 065

REACTIONS (7)
  - STREPTOCOCCAL INFECTION [None]
  - PURULENT DISCHARGE [None]
  - NECROTISING FASCIITIS [None]
  - PAIN IN EXTREMITY [None]
  - WOUND [None]
  - ERYTHEMA [None]
  - OEDEMA PERIPHERAL [None]
